FAERS Safety Report 12511331 (Version 1)
Quarter: 2016Q2

REPORT INFORMATION
  Report Type: Spontaneous
  Country: US (occurrence: US)
  Receive Date: 20160629
  Receipt Date: 20160629
  Transmission Date: 20160815
  Serious: No
  Sender: FDA-Public Use
  Company Number: US-ACTELION-A-US2015-112934

PATIENT
  Age: 45 Year
  Sex: Female

DRUGS (6)
  1. FLUOCINONIDE-E [Concomitant]
     Dosage: UNK
     Dates: start: 20141210
  2. VALCHLOR [Suspect]
     Active Substance: MECHLORETHAMINE
     Indication: MYCOSIS FUNGOIDES
     Dosage: 0.016 %, UNK
     Route: 061
     Dates: start: 20141213
  3. TRIAMCINOLONE [Concomitant]
     Active Substance: TRIAMCINOLONE
     Dosage: UNK
     Dates: start: 20141210
  4. VALCHLOR [Suspect]
     Active Substance: MECHLORETHAMINE
     Dosage: 0.016 %, QOD
     Route: 061
  5. MEDROXYPROGESTERONE ACETATE. [Concomitant]
     Active Substance: MEDROXYPROGESTERONE ACETATE
  6. OMEPRAZOLE. [Concomitant]
     Active Substance: OMEPRAZOLE
     Dosage: UNK
     Dates: start: 20141210

REACTIONS (4)
  - Application site dryness [Unknown]
  - Fall [Unknown]
  - Sciatic nerve injury [Unknown]
  - Contusion [Unknown]
